FAERS Safety Report 4937197-0 (Version None)
Quarter: 2006Q1

REPORT INFORMATION
  Report Type: 
  Country: None (occurrence: None)
  Receive Date: 20060307
  Receipt Date: 20060307
  Transmission Date: 20060701
  Serious: Yes (Other)
  Sender: FDA-Public Use
  Company Number: None

PATIENT
  Sex: Female
  Weight: 76.6579 kg

DRUGS (2)
  1. MIRAPEX [Suspect]
     Indication: FIBROMYALGIA
     Dosage: 4.5MG   1X DAILY  PO
     Route: 048
     Dates: start: 20041001, end: 20041109
  2. MIRAPEX [Suspect]
     Indication: FIBROMYALGIA
     Dosage: 4.5MG   1X DAILY  PO
     Route: 048
     Dates: start: 20050601, end: 20050909

REACTIONS (3)
  - ABNORMAL BEHAVIOUR [None]
  - COMPULSIONS [None]
  - GAMBLING [None]
